FAERS Safety Report 16797239 (Version 1)
Quarter: 2019Q3

REPORT INFORMATION
  Report Type: Report from Study
  Country: AU (occurrence: AU)
  Receive Date: 20190912
  Receipt Date: 20190912
  Transmission Date: 20191005
  Serious: Yes (Hospitalization)
  Sender: FDA-Public Use
  Company Number: AU-SUN PHARMACEUTICAL INDUSTRIES LTD-2019R1-220182

PATIENT
  Age: 40 Year
  Sex: Female

DRUGS (1)
  1. TILDRAKIZUMAB [Suspect]
     Active Substance: TILDRAKIZUMAB
     Indication: PRODUCT USED FOR UNKNOWN INDICATION
     Dosage: 200MG Q4WEEKLY SUBCUT (HS DOSING)
     Route: 058

REACTIONS (6)
  - Psoriatic arthropathy [Unknown]
  - Weight bearing difficulty [Unknown]
  - Cellulitis [Unknown]
  - Swelling [Unknown]
  - Pyrexia [Unknown]
  - Erythema [Unknown]

NARRATIVE: CASE EVENT DATE: 20190826
